FAERS Safety Report 4524716-1 (Version None)
Quarter: 2004Q4

REPORT INFORMATION
  Report Type: 
  Country: None (occurrence: None)
  Receive Date: 20041211
  Receipt Date: 20041118
  Transmission Date: 20050328
  Serious: Yes (Life-Threatening, Hospitalization, Disabling)
  Sender: FDA-Public Use
  Company Number: US-MERCK-0411USA03250

PATIENT
  Age: 71 Year
  Sex: Female
  Weight: 123 kg

DRUGS (8)
  1. VIOXX [Suspect]
     Indication: SURGERY
     Route: 048
     Dates: start: 19980101, end: 20040101
  2. PLENDIL [Concomitant]
     Route: 048
  3. COUMADIN [Concomitant]
     Route: 065
  4. HUMULIN 70/30 [Concomitant]
     Route: 065
  5. CATAPRES [Concomitant]
     Route: 065
  6. REGLAN [Concomitant]
     Route: 065
  7. CELEBREX [Concomitant]
     Route: 065
  8. CORTISONE [Concomitant]
     Route: 065

REACTIONS (3)
  - CHEST DISCOMFORT [None]
  - DEEP VEIN THROMBOSIS [None]
  - HEART RATE INCREASED [None]
